FAERS Safety Report 7735370-X (Version None)
Quarter: 2011Q3

REPORT INFORMATION
  Report Type: 
  Country: None (occurrence: None)
  Receive Date: 20110907
  Receipt Date: 20110831
  Transmission Date: 20111222
  Serious: Yes (Other)
  Sender: FDA-Public Use
  Company Number: PHHY2011JP77960

PATIENT
  Age: 50 Year
  Sex: Male

DRUGS (4)
  1. BEVACIZUMAB [Concomitant]
     Indication: COLORECTAL CANCER
  2. FLUOROURACIL [Concomitant]
     Indication: COLORECTAL CANCER
  3. OXALIPLATIN [Suspect]
     Indication: COLORECTAL CANCER
  4. LEUCOVORIN CALCIUM [Concomitant]
     Indication: COLORECTAL CANCER

REACTIONS (3)
  - HYPOAESTHESIA [None]
  - THROMBOCYTOPENIA [None]
  - SPLENOMEGALY [None]
